FAERS Safety Report 21336330 (Version 1)
Quarter: 2022Q3

REPORT INFORMATION
  Report Type: Spontaneous
  Country: JP (occurrence: JP)
  Receive Date: 20220915
  Receipt Date: 20220915
  Transmission Date: 20221026
  Serious: Yes (Other)
  Sender: FDA-Public Use
  Company Number: JP-SANOFI-AVENTIS-2012SA073543

PATIENT
  Age: 65 Year
  Sex: Male

DRUGS (3)
  1. ALLEGRA [Suspect]
     Active Substance: FEXOFENADINE HYDROCHLORIDE
     Indication: Rhinitis
     Dosage: DAILY DOSE: 120 MG
     Route: 048
     Dates: start: 20120914, end: 20120918
  2. SOLANAX [Concomitant]
     Active Substance: ALPRAZOLAM
     Indication: Mental disorder
     Dosage: DAILY DOSE: 1.2 MG
     Route: 048
     Dates: start: 20120622
  3. URDENACIN [Concomitant]
     Indication: Liver disorder
     Dosage: DAILY DOSE: 600 MG
     Route: 048
     Dates: start: 20120720, end: 20120918

REACTIONS (6)
  - Loss of consciousness [Recovered/Resolved]
  - Physical disability [Unknown]
  - Disability [Unknown]
  - Sopor [Recovered/Resolved]
  - Sensory disturbance [Unknown]
  - Anaesthesia [Unknown]

NARRATIVE: CASE EVENT DATE: 20120914
